FAERS Safety Report 7551895-4 (Version None)
Quarter: 2011Q2

REPORT INFORMATION
  Report Type: 
  Country: None (occurrence: None)
  Receive Date: 20110616
  Receipt Date: 20110606
  Transmission Date: 20111010
  Serious: Yes (Life-Threatening, Hospitalization)
  Sender: FDA-Public Use
  Company Number: US-BAYER-201020152NA

PATIENT
  Age: 30 Year
  Sex: Female
  Weight: 83.447 kg

DRUGS (4)
  1. PERCOCET [Concomitant]
  2. METFORMIN HCL [Concomitant]
     Indication: POLYCYSTIC OVARIES
  3. YAZ [Suspect]
     Indication: UNEVALUABLE EVENT
     Route: 048
  4. PHENERGAN HCL [Concomitant]

REACTIONS (3)
  - PULMONARY EMBOLISM [None]
  - BACK PAIN [None]
  - MUSCULOSKELETAL PAIN [None]
